FAERS Safety Report 21393064 (Version 1)
Quarter: 2022Q3

REPORT INFORMATION
  Report Type: Spontaneous
  Country: ES (occurrence: ES)
  Receive Date: 20220929
  Receipt Date: 20220929
  Transmission Date: 20221027
  Serious: Yes (Hospitalization)
  Sender: FDA-Public Use
  Company Number: None

PATIENT
  Age: 78 Year
  Sex: Female

DRUGS (8)
  1. METFORMIN [Suspect]
     Active Substance: METFORMIN HYDROCHLORIDE
     Indication: Type 2 diabetes mellitus
     Dosage: 1000.0 MG C/12 H
     Route: 048
     Dates: start: 20210906, end: 20210917
  2. QUETIAPINE FUMARATE [Concomitant]
     Active Substance: QUETIAPINE FUMARATE
     Indication: Cognitive disorder
     Dosage: 25.0 MG CE
     Route: 048
     Dates: start: 20191023
  3. OMEPRAZOLE [Concomitant]
     Active Substance: OMEPRAZOLE
     Indication: Cirrhosis alcoholic
     Dosage: 40.0 MG A-DE
     Route: 048
     Dates: start: 20120920
  4. FOLIC ACID [Concomitant]
     Active Substance: FOLIC ACID
     Indication: Cirrhosis alcoholic
     Dosage: 5.0 MG DE
     Route: 048
     Dates: start: 20191024
  5. RIFAXIMIN [Concomitant]
     Active Substance: RIFAXIMIN
     Indication: Encephalopathy
     Dosage: 200.0 MG C/8 HORAS
     Route: 048
     Dates: start: 20191023
  6. PARACETAMOL CINFA [Concomitant]
     Indication: Fracture
     Dosage: 650.0 MG DECOCE
     Route: 048
     Dates: start: 20191118
  7. ALDACTONE [Concomitant]
     Active Substance: SPIRONOLACTONE
     Indication: Ascites
     Dosage: 100.0 MG DE
     Route: 048
     Dates: start: 20191115
  8. PROPRANOLOL [Concomitant]
     Active Substance: PROPRANOLOL HYDROCHLORIDE
     Indication: Product used for unknown indication
     Dosage: 10.0 MG
     Route: 048
     Dates: start: 20191024

REACTIONS (2)
  - Chronic kidney disease [Recovered/Resolved]
  - Diarrhoea [Recovered/Resolved]

NARRATIVE: CASE EVENT DATE: 20210917
